FAERS Safety Report 12780632 (Version 1)
Quarter: 2016Q3

REPORT INFORMATION
  Report Type: Spontaneous
  Country: US (occurrence: US)
  Receive Date: 20160926
  Receipt Date: 20160926
  Transmission Date: 20161109
  Serious: Yes (Other)
  Sender: FDA-Public Use
  Company Number: US-FRESENIUS KABI-FK201606956

PATIENT

DRUGS (1)
  1. SENSORCAINE WITH EPINEPHRINE [Suspect]
     Active Substance: BUPIVACAINE HYDROCHLORIDE\EPINEPHRINE BITARTRATE
     Indication: PRODUCT USED FOR UNKNOWN INDICATION
     Route: 065
     Dates: start: 20160919, end: 20160919

REACTIONS (2)
  - Drug ineffective [Unknown]
  - Injection site haemorrhage [Unknown]

NARRATIVE: CASE EVENT DATE: 20160919
